FAERS Safety Report 7699525-5 (Version None)
Quarter: 2011Q3

REPORT INFORMATION
  Report Type: 
  Country: None (occurrence: None)
  Receive Date: 20110820
  Receipt Date: 20110802
  Transmission Date: 20111222
  Serious: No
  Sender: FDA-Public Use
  Company Number: US-ALLERGAN-1110418US

PATIENT
  Age: 95 Year
  Sex: Male

DRUGS (2)
  1. UNSPECIFIED MEDICATION FOR SHINGLES [Concomitant]
     Indication: HERPES ZOSTER
  2. SANCTURA XR [Suspect]
     Indication: PRODUCT USED FOR UNKNOWN INDICATION
     Route: 048

REACTIONS (1)
  - GASTROOESOPHAGEAL REFLUX DISEASE [None]
